FAERS Safety Report 5226416-1 (Version None)
Quarter: 2007Q1

REPORT INFORMATION
  Report Type: 
  Country: None (occurrence: None)
  Receive Date: 20061201
  Receipt Date: 20060928
  Transmission Date: 20070707
  Serious: No
  Sender: FDA-Public Use
  Company Number: US200609007021

PATIENT
  Age: 36 Year
  Sex: Female

DRUGS (1)
  1. CYMBALTA [Suspect]
     Indication: DEPRESSION
     Dosage: SEE IMAGE
     Dates: start: 20040901, end: 20060701

REACTIONS (4)
  - ABNORMAL BEHAVIOUR [None]
  - ABORTION SPONTANEOUS [None]
  - ANXIETY [None]
  - DRUG EXPOSURE DURING PREGNANCY [None]
